FAERS Safety Report 21143611 (Version 1)
Quarter: 2022Q3

REPORT INFORMATION
  Report Type: Spontaneous
  Country: US (occurrence: None)
  Receive Date: 20220728
  Receipt Date: 20220728
  Transmission Date: 20221027
  Serious: No
  Sender: FDA-Public Use
  Company Number: None

PATIENT
  Age: 55 Year
  Sex: Female
  Weight: 81 kg

DRUGS (1)
  1. IBUPROFEN [Suspect]
     Active Substance: IBUPROFEN
     Indication: Pain
     Dosage: OTHER QUANTITY : 200 TABLET(S);?FREQUENCY : EVERY 8 HOURS;?
     Route: 048

REACTIONS (3)
  - Product substitution issue [None]
  - Product formulation issue [None]
  - Inadequate analgesia [None]

NARRATIVE: CASE EVENT DATE: 20220727
